FAERS Safety Report 8541174-0 (Version None)
Quarter: 2012Q3

REPORT INFORMATION
  Report Type: 
  Country: None (occurrence: None)
  Receive Date: 20120726
  Receipt Date: 20120718
  Transmission Date: 20120928
  Serious: Yes (Hospitalization)
  Sender: FDA-Public Use
  Company Number: US-ACTELION-A-US2011-51647

PATIENT

DRUGS (4)
  1. SYMBICORT [Concomitant]
  2. TRACLEER [Suspect]
     Indication: PULMONARY ARTERIAL HYPERTENSION
     Dosage: UNK
     Route: 048
     Dates: start: 20110628
  3. XOPENEX [Concomitant]
  4. ALBUTEROL [Concomitant]

REACTIONS (7)
  - CHOLECYSTECTOMY [None]
  - DYSPNOEA [None]
  - CHOLELITHIASIS [None]
  - BLOOD POTASSIUM DECREASED [None]
  - COUGH [None]
  - CONDITION AGGRAVATED [None]
  - CHEST PAIN [None]
